FAERS Safety Report 4749875-7 (Version None)
Quarter: 2005Q3

REPORT INFORMATION
  Report Type: 
  Country: None (occurrence: None)
  Receive Date: 20050818
  Receipt Date: 20050803
  Transmission Date: 20060218
  Serious: Yes (Hospitalization)
  Sender: FDA-Public Use
  Company Number: 2005001506

PATIENT
  Age: 22 Year
  Sex: Female
  Weight: 68 kg

DRUGS (7)
  1. ERLOTINIB HCL (TABLET) [Suspect]
     Indication: GLIOBLASTOMA
     Dosage: 200 MG (QS), ORAL
     Route: 048
     Dates: start: 20041216, end: 20050128
  2. TEMOZOLOMIDE (TEMOZOLOMIDE) (TABLET) [Suspect]
     Indication: GLIOBLASTOMA
     Dosage: 130 MG (QD), ORAL
     Route: 048
     Dates: start: 20041216, end: 20050128
  3. DILANTIN [Concomitant]
  4. CEFOXATIME (CEFOXATIME) [Concomitant]
  5. COLACE (DOCUSATE  SODIUM) [Concomitant]
  6. VICODIN [Concomitant]
  7. DECADRON [Concomitant]

REACTIONS (2)
  - HERPES ZOSTER [None]
  - POSTOPERATIVE WOUND COMPLICATION [None]
